FAERS Safety Report 14649674 (Version 1)
Quarter: 2018Q1

REPORT INFORMATION
  Report Type: Other
  Country: GB (occurrence: US)
  Receive Date: 20180316
  Receipt Date: 20180316
  Transmission Date: 20180509
  Serious: Yes (Death, Other)
  Sender: FDA-Public Use
  Company Number: GB-DIMETHAID UK LIMITED-DIM-001153-2018

PATIENT
  Age: 38 Year
  Sex: Male
  Weight: 91.2 kg

DRUGS (8)
  1. TADALAFIL [Suspect]
     Active Substance: TADALAFIL
     Indication: COMPLETED SUICIDE
     Dosage: UNK
     Route: 065
  2. OMEPRAZOLE. [Suspect]
     Active Substance: OMEPRAZOLE
     Indication: COMPLETED SUICIDE
     Dosage: UNK
     Route: 065
  3. PROPRANOLOL HYDROCHLORIDE. [Suspect]
     Active Substance: PROPRANOLOL HYDROCHLORIDE
     Indication: COMPLETED SUICIDE
     Dosage: UNK
     Route: 065
  4. PREGABALIN. [Suspect]
     Active Substance: PREGABALIN
     Indication: COMPLETED SUICIDE
     Dosage: UNK
     Route: 065
  5. DULOXETINE. [Suspect]
     Active Substance: DULOXETINE
     Indication: COMPLETED SUICIDE
     Dosage: UNK
     Route: 065
  6. VERAPAMIL [Suspect]
     Active Substance: VERAPAMIL HYDROCHLORIDE
     Indication: COMPLETED SUICIDE
     Dosage: 240 MG ONE DAY
     Route: 065
  7. PENNSAID [Suspect]
     Active Substance: DICLOFENAC SODIUM
     Indication: COMPLETED SUICIDE
     Dosage: UNK
     Route: 065
  8. LORAZEPAM. [Suspect]
     Active Substance: LORAZEPAM
     Indication: COMPLETED SUICIDE
     Dosage: UNK
     Route: 065

REACTIONS (3)
  - Unresponsive to stimuli [Unknown]
  - Toxicity to various agents [Fatal]
  - Intentional overdose [Fatal]
